FAERS Safety Report 6582472-X (Version None)
Quarter: 2010Q1

REPORT INFORMATION
  Report Type: 
  Country: None (occurrence: None)
  Receive Date: 20100216
  Receipt Date: 20100204
  Transmission Date: 20100710
  Serious: Yes (Other)
  Sender: FDA-Public Use
  Company Number: PHHY2009IE46538

PATIENT
  Sex: Male

DRUGS (2)
  1. CLOZARIL [Suspect]
     Indication: SCHIZOPHRENIA
     Dosage: UNK
     Dates: start: 20091010, end: 20091024
  2. CLOZARIL [Suspect]
     Dosage: 50 MG, BID
     Dates: start: 20091026

REACTIONS (7)
  - CONFUSIONAL STATE [None]
  - DELIRIUM [None]
  - HAEMATURIA [None]
  - NEUTROPHIL COUNT INCREASED [None]
  - PROTEINURIA [None]
  - URINARY TRACT INFECTION [None]
  - WHITE BLOOD CELL COUNT INCREASED [None]
